FAERS Safety Report 15590321 (Version 2)
Quarter: 2019Q1

REPORT INFORMATION
  Report Type: Spontaneous
  Country: HU (occurrence: HU)
  Receive Date: 20181106
  Receipt Date: 20190109
  Transmission Date: 20190417
  Serious: Yes (Death, Other)
  Sender: FDA-Public Use
  Company Number: HU-MYLANLABS-2018M1082407

PATIENT
  Age: 4 Week
  Sex: Male

DRUGS (3)
  1. FLUCONAZOLE. [Suspect]
     Active Substance: FLUCONAZOLE
     Indication: PRODUCT USED FOR UNKNOWN INDICATION
     Dosage: UNK
     Route: 065
  2. FLUCLOXACILLIN [Suspect]
     Active Substance: FLUCLOXACILLIN
     Indication: PRODUCT USED FOR UNKNOWN INDICATION
     Dosage: UNK
  3. MEROPENEM. [Suspect]
     Active Substance: MEROPENEM
     Indication: PRODUCT USED FOR UNKNOWN INDICATION
     Dosage: UNK

REACTIONS (9)
  - Eye disorder [Not Recovered/Not Resolved]
  - Abscess [Fatal]
  - Necrosis [Fatal]
  - Anaemia [Unknown]
  - Myoclonic epilepsy [Recovered/Resolved]
  - Periorbital cellulitis [Fatal]
  - Multiple organ dysfunction syndrome [Fatal]
  - Brain herniation [Fatal]
  - Neutropenia [Unknown]
